FAERS Safety Report 8953560 (Version 1)
Quarter: 2012Q4

REPORT INFORMATION
  Report Type: 
  Country: US (occurrence: US)
  Receive Date: 20121206
  Receipt Date: 20121206
  Transmission Date: 20130627
  Serious: No
  Sender: FDA-Public Use
  Company Number: US-PFIZER INC-2012300453

PATIENT
  Age: 74 Year
  Sex: Female
  Weight: 118 kg

DRUGS (11)
  1. TOVIAZ [Suspect]
     Indication: URINARY INCONTINENCE
     Dosage: 8 mg, daily
     Dates: start: 201209
  2. METOPROLOL [Concomitant]
     Indication: BLOOD PRESSURE ABNORMAL
     Dosage: 50 mg, daily
  3. WARFARIN [Concomitant]
     Dosage: 4 mg, daily
  4. METFORMIN [Concomitant]
     Dosage: 1000 mg, 2x/day
  5. VITAMIN D3 [Concomitant]
     Dosage: 2000 IU, daily
  6. GLIMEPIRIDE [Concomitant]
     Dosage: 1 mg, daily
  7. SIMVASTATIN [Concomitant]
     Dosage: 40 mg, daily
  8. ALENDRONATE SODIUM [Concomitant]
     Dosage: 70 mg, weekly
  9. BYETTA [Concomitant]
     Dosage: 250 mg, 2x/day
  10. AMLODIPINE BESILATE [Concomitant]
     Dosage: 5 mg, daily
  11. GLUCOSAMINE [Concomitant]
     Dosage: 3 tablets daily

REACTIONS (1)
  - Abdominal pain [Not Recovered/Not Resolved]
